FAERS Safety Report 5764069-4 (Version None)
Quarter: 2008Q2

REPORT INFORMATION
  Report Type: 
  Country: None (occurrence: None)
  Receive Date: 20080606
  Receipt Date: 20080606
  Transmission Date: 20081010
  Serious: Yes (Disabling)
  Sender: FDA-Public Use
  Company Number: None

PATIENT
  Age: 47 Year
  Sex: Female
  Weight: 69.4003 kg

DRUGS (6)
  1. TAXOTERE [Suspect]
     Indication: BREAST CANCER
     Dosage: 128 MG Q3W IV
     Route: 042
     Dates: start: 20040903
  2. TAXOTERE [Suspect]
     Indication: BREAST CANCER
     Dosage: 128 MG Q3W IV
     Route: 042
     Dates: start: 20040924
  3. TAXOTERE [Suspect]
     Indication: BREAST CANCER
     Dosage: 128 MG Q3W IV
     Route: 042
     Dates: start: 20041015
  4. TAXOTERE [Suspect]
     Indication: BREAST CANCER
     Dosage: 128 MG Q3W IV
     Route: 042
     Dates: start: 20041105
  5. TAXOTERE [Suspect]
     Indication: BREAST CANCER
     Dosage: 128 MG Q3W IV
     Route: 042
     Dates: start: 20041126
  6. TAXOTERE [Suspect]
     Indication: BREAST CANCER
     Dosage: 128 MG Q3W IV
     Route: 042
     Dates: start: 20041217

REACTIONS (1)
  - ALOPECIA [None]
